APPROVED DRUG PRODUCT: FLUDEOXYGLUCOSE F18
Active Ingredient: FLUDEOXYGLUCOSE F-18
Strength: 4-500mCi/ML
Dosage Form/Route: INJECTABLE;INTRAVENOUS
Application: A203994 | Product #001
Applicant: NORTHLAND NUCLEAR MEDICINE LLC
Approved: Feb 4, 2015 | RLD: No | RS: No | Type: RX